FAERS Safety Report 6499640-8 (Version None)
Quarter: 2009Q4

REPORT INFORMATION
  Report Type: 
  Country: None (occurrence: None)
  Receive Date: 20091215
  Receipt Date: 20091209
  Transmission Date: 20100525
  Serious: Yes (Other)
  Sender: FDA-Public Use
  Company Number: US-BAYER-200940815NA

PATIENT
  Age: 32 Year
  Sex: Female

DRUGS (2)
  1. BETASERON [Suspect]
     Indication: MULTIPLE SCLEROSIS
     Route: 058
     Dates: end: 20080101
  2. REBIF [Concomitant]

REACTIONS (3)
  - INJECTION SITE REACTION [None]
  - LIVER DISORDER [None]
  - PREGNANCY [None]
